FAERS Safety Report 24027681 (Version 1)
Quarter: 2024Q2

REPORT INFORMATION
  Report Type: Spontaneous
  Country: IT (occurrence: IT)
  Receive Date: 20240628
  Receipt Date: 20240628
  Transmission Date: 20240715
  Serious: Yes (Other)
  Sender: FDA-Public Use
  Company Number: None

PATIENT
  Age: 66 Year
  Sex: Female

DRUGS (5)
  1. OXALIPLATIN [Suspect]
     Active Substance: OXALIPLATIN
     Indication: Rectal cancer metastatic
     Dosage: 95 MILLIGRAMS EVERY 14 DAYS
     Route: 042
     Dates: start: 20230427, end: 20230427
  2. FLUOROURACIL [Suspect]
     Active Substance: FLUOROURACIL
     Indication: Rectal cancer metastatic
     Dosage: 2880 MILLIGRAMS EVERY 14 DAYS, 5-FLUOROURACILE
     Route: 042
     Dates: start: 20230427, end: 20230427
  3. FLUOROURACIL [Suspect]
     Active Substance: FLUOROURACIL
     Indication: Rectal cancer metastatic
     Dosage: 480 MILLIGRAMS EVERY 14 DAYS ADMINISTERED AS A BOLUS, 5-FLUOROURACILE
     Route: 042
     Dates: start: 20230427, end: 20230427
  4. LEVOLEUCOVORIN CALCIUM [Concomitant]
     Active Substance: LEVOLEUCOVORIN CALCIUM
     Indication: Product used for unknown indication
     Route: 042
  5. BEVACIZUMAB [Suspect]
     Active Substance: BEVACIZUMAB
     Indication: Rectal cancer metastatic
     Dosage: 270 MILLIGRAMS EVERY 14 DAYS
     Route: 042
     Dates: start: 20230427, end: 20230427

REACTIONS (2)
  - Neutropenia [Unknown]
  - Diarrhoea [Recovered/Resolved]

NARRATIVE: CASE EVENT DATE: 20230515
